FAERS Safety Report 11812498 (Version 1)
Quarter: 2015Q4

REPORT INFORMATION
  Report Type: Spontaneous
  Country: IT (occurrence: IT)
  Receive Date: 20151208
  Receipt Date: 20151208
  Transmission Date: 20160305
  Serious: Yes (Other)
  Sender: FDA-Public Use
  Company Number: PHHY2015IT155746

PATIENT
  Age: 45 Year
  Sex: Female

DRUGS (1)
  1. CEFTRIAXONE. [Suspect]
     Active Substance: CEFTRIAXONE
     Indication: ANTIBIOTIC PROPHYLAXIS
     Dosage: UNK
     Route: 030
     Dates: start: 20150623, end: 20150623

REACTIONS (2)
  - Dyspnoea at rest [Unknown]
  - Feeling hot [Unknown]

NARRATIVE: CASE EVENT DATE: 20150623
